FAERS Safety Report 18679766 (Version 3)
Quarter: 2021Q1

REPORT INFORMATION
  Report Type: Spontaneous
  Country: JP (occurrence: JP)
  Receive Date: 20201230
  Receipt Date: 20210326
  Transmission Date: 20210419
  Serious: Yes (Death, Hospitalization, Disabling, Other)
  Sender: FDA-Public Use
  Company Number: JP-JNJFOC-20201251501

PATIENT
  Age: 75 Year
  Sex: Female
  Weight: 41 kg

DRUGS (10)
  1. ELOTUZUMAB(GENETICAL RECOMBINATION) [Suspect]
     Active Substance: ELOTUZUMAB
     Indication: PLASMA CELL MYELOMA
     Route: 041
  2. ASPARA?CA [Concomitant]
     Active Substance: CALCIUM ASPARTATE
     Indication: HYPOCALCAEMIA
     Route: 048
     Dates: start: 20190510, end: 20190626
  3. SHAKUYAKUKANZOTO [Concomitant]
     Active Substance: HERBALS
     Indication: MUSCLE SPASMS
     Dosage: P.R.N
     Route: 048
     Dates: start: 20190419, end: 20190626
  4. DARZALEX [Suspect]
     Active Substance: DARATUMUMAB
     Indication: PLASMA CELL MYELOMA
     Route: 041
     Dates: start: 20190419, end: 20190614
  5. DEXAMETHASONE. [Suspect]
     Active Substance: DEXAMETHASONE
     Indication: PLASMA CELL MYELOMA
     Route: 048
     Dates: start: 20190419, end: 20190615
  6. HERBESSER [Concomitant]
     Active Substance: DILTIAZEM HYDROCHLORIDE
     Indication: HYPERTENSION
     Route: 048
     Dates: end: 20190626
  7. LENALIDOMIDE HYDRATE [Suspect]
     Active Substance: LENALIDOMIDE
     Indication: PLASMA CELL MYELOMA
     Route: 048
     Dates: start: 20190419, end: 20190626
  8. CALONAL [Concomitant]
     Active Substance: ACETAMINOPHEN
     Indication: PROPHYLAXIS
     Route: 048
     Dates: start: 20190419, end: 20190614
  9. POLARAMINE [Concomitant]
     Active Substance: DEXCHLORPHENIRAMINE MALEATE
     Indication: PROPHYLAXIS
     Route: 048
     Dates: start: 20190419, end: 20190614
  10. ALFACALCIDOL [Concomitant]
     Active Substance: ALFACALCIDOL
     Indication: OSTEOPOROSIS
     Route: 048
     Dates: start: 20170512, end: 20190626

REACTIONS (9)
  - Plasma cell leukaemia [Fatal]
  - Cardiac failure acute [Fatal]
  - Cerebral infarction [Recovered/Resolved with Sequelae]
  - Lymphocyte count decreased [Unknown]
  - Anaemia [Unknown]
  - Oedema peripheral [Recovered/Resolved]
  - Pneumocystis jirovecii pneumonia [Recovered/Resolved]
  - Meningitis cryptococcal [Recovered/Resolved with Sequelae]
  - Acute kidney injury [Fatal]

NARRATIVE: CASE EVENT DATE: 2019
